FAERS Safety Report 8848662 (Version 2)
Quarter: 2012Q4

REPORT INFORMATION
  Report Type: Report from Study
  Country: US (occurrence: US)
  Receive Date: 20121018
  Receipt Date: 20121102
  Transmission Date: 20130627
  Serious: Yes (Hospitalization)
  Sender: FDA-Public Use
  Company Number: US-JNJFOC-20121009681

PATIENT
  Age: 14 Year
  Sex: Female
  Weight: 40.1 kg

DRUGS (9)
  1. REMICADE [Suspect]
     Indication: INFLAMMATORY BOWEL DISEASE
     Route: 042
     Dates: start: 20110826
  2. FOLIC ACID [Concomitant]
  3. LANSOPRAZOLE [Concomitant]
  4. METHOTREXATE [Concomitant]
  5. ZOFRAN [Concomitant]
  6. PREDNISONE [Concomitant]
  7. BENADRYL [Concomitant]
  8. 5-ASA [Concomitant]
     Route: 048
  9. MULTIVITAMINS [Concomitant]

REACTIONS (1)
  - Small intestinal obstruction [Recovered/Resolved]
